FAERS Safety Report 16835817 (Version 1)
Quarter: 2019Q3

REPORT INFORMATION
  Report Type: Spontaneous
  Country: AU (occurrence: AU)
  Receive Date: 20190920
  Receipt Date: 20190920
  Transmission Date: 20191005
  Serious: Yes (Other)
  Sender: FDA-Public Use
  Company Number: AU-VIIV HEALTHCARE LIMITED-AU2019APC166563

PATIENT

DRUGS (1)
  1. TRIUMEQ [Suspect]
     Active Substance: ABACAVIR SULFATE\DOLUTEGRAVIR SODIUM\LAMIVUDINE
     Indication: PRODUCT USED FOR UNKNOWN INDICATION
     Dosage: UNK

REACTIONS (7)
  - Headache [Recovered/Resolved]
  - Weight increased [Recovered/Resolved]
  - Transaminases increased [Recovered/Resolved]
  - Acute HIV infection [Recovered/Resolved]
  - Lethargy [Recovered/Resolved]
  - Blood HIV RNA below assay limit [Recovered/Resolved]
  - Hyperhidrosis [Recovered/Resolved]
